FAERS Safety Report 9521995 (Version 2)
Quarter: 2013Q3

REPORT INFORMATION
  Report Type: Spontaneous
  Country: US (occurrence: None)
  Receive Date: 20130905
  Receipt Date: 20130917
  Transmission Date: 20140515
  Serious: Yes (Other)
  Sender: FDA-Public Use
  Company Number: 2013PROUSA03115

PATIENT
  Age: 89 Year
  Sex: Male

DRUGS (1)
  1. PROVENGE [Suspect]
     Indication: PROSTATE CANCER METASTATIC
     Route: 042
     Dates: start: 20130815, end: 20130815

REACTIONS (6)
  - Loss of consciousness [None]
  - Blood pressure decreased [None]
  - Procedural complication [None]
  - Cystitis [None]
  - General physical health deterioration [None]
  - Dizziness [None]
